FAERS Safety Report 5352614-2 (Version None)
Quarter: 2007Q2

REPORT INFORMATION
  Report Type: 
  Country: None (occurrence: None)
  Receive Date: 20070611
  Receipt Date: 20070529
  Transmission Date: 20071010
  Serious: Yes (Death, Other)
  Sender: FDA-Public Use
  Company Number: JP-SHR-JP-2007-019922

PATIENT
  Age: 58 Year
  Sex: Male

DRUGS (8)
  1. CAMPATH [Suspect]
     Dosage: 7.8 MG, AFTER 3 DAYS
     Route: 042
  2. CAMPATH [Suspect]
     Dosage: 70 MG, ADDITIONAL TOTAL DOSE
     Route: 042
  3. DEXAMETHASONE 0.5MG TAB [Concomitant]
     Dosage: 40 MG, 1X/DAY
     Route: 042
  4. IFOSFAMIDE [Concomitant]
     Dosage: 1800 MG/M2, UNK
     Route: 042
  5. ELSPAR [Concomitant]
     Dosage: 6 MIU/M2, EVERY 2D
     Route: 042
  6. METHOTREXATE [Concomitant]
     Dosage: 200 MG/M2, 1 DOSE
     Route: 042
  7. METHOTREXATE [Concomitant]
     Dosage: 300 MG/M2, 1X/DAY
     Route: 042
  8. LEUCOVORIN CALCIUM [Concomitant]

REACTIONS (6)
  - CEREBRAL HAEMORRHAGE [None]
  - DYSPNOEA [None]
  - GENERALISED OEDEMA [None]
  - HYPERTENSION [None]
  - PYREXIA [None]
  - TREMOR [None]
